FAERS Safety Report 15749779 (Version 1)
Quarter: 2018Q4

REPORT INFORMATION
  Report Type: Spontaneous
  Country: HR (occurrence: HR)
  Receive Date: 20181221
  Receipt Date: 20181221
  Transmission Date: 20190205
  Serious: Yes (Hospitalization)
  Sender: FDA-Public Use
  Company Number: PHHY2018HR190284

PATIENT
  Sex: Female

DRUGS (14)
  1. KNAVON [Suspect]
     Active Substance: KETOPROFEN
     Indication: MIGRAINE
     Route: 065
  2. NORMABEL [Suspect]
     Active Substance: DIAZEPAM
     Indication: MIGRAINE
     Dosage: UNK
     Route: 065
  3. AMYZOL [Suspect]
     Active Substance: AMITRIPTYLINE
     Indication: MIGRAINE PROPHYLAXIS
     Dosage: UNK
     Route: 065
  4. KETONAL [Suspect]
     Active Substance: KETOPROFEN
     Indication: MIGRAINE
     Dosage: UNK
     Route: 065
  5. BOTOX [Suspect]
     Active Substance: ONABOTULINUMTOXINA
     Indication: MIGRAINE
     Dosage: UNK
     Route: 065
  6. PROPRANOLOL [Suspect]
     Active Substance: PROPRANOLOL HYDROCHLORIDE
     Indication: MIGRAINE PROPHYLAXIS
     Dosage: 180 MG, UNK
     Route: 065
  7. PLIVADON (CAFFEINE\PHENACETIN\PROPYPHENAZONE) [Suspect]
     Active Substance: CAFFEINE\PHENACETIN\PROPYPHENAZONE
     Indication: MIGRAINE
     Route: 065
  8. ELICEA [Suspect]
     Active Substance: ESCITALOPRAM OXALATE
     Indication: MIGRAINE
     Dosage: UNK
     Route: 065
  9. PROPRANOLOL [Suspect]
     Active Substance: PROPRANOLOL HYDROCHLORIDE
     Dosage: 120 MG, UNK
     Route: 065
  10. ERENUMAB [Concomitant]
     Active Substance: ERENUMAB
     Indication: PRODUCT USED FOR UNKNOWN INDICATION
     Dosage: UNK
     Route: 065
  11. IMIGRAN [Suspect]
     Active Substance: SUMATRIPTAN SUCCINATE
     Indication: MIGRAINE
     Dosage: UNK
     Route: 065
  12. HELEX [Suspect]
     Active Substance: ALPRAZOLAM
     Indication: MIGRAINE PROPHYLAXIS
     Dosage: UNK
     Route: 065
  13. CIPRALEX [Suspect]
     Active Substance: ESCITALOPRAM OXALATE
     Indication: MIGRAINE PROPHYLAXIS
     Route: 065
  14. TOPIRAMATE. [Suspect]
     Active Substance: TOPIRAMATE
     Indication: MIGRAINE
     Dosage: UNK
     Route: 065

REACTIONS (2)
  - Drug intolerance [Unknown]
  - Drug ineffective [Unknown]
